FAERS Safety Report 14597263 (Version 1)
Quarter: 2018Q1

REPORT INFORMATION
  Report Type: Spontaneous
  Country: US (occurrence: US)
  Receive Date: 20180305
  Receipt Date: 20180305
  Transmission Date: 20180509
  Serious: Yes (Other)
  Sender: FDA-Public Use
  Company Number: US-SUN PHARMACEUTICAL INDUSTRIES LTD-2017US-156924

PATIENT
  Age: 65 Year
  Sex: Female
  Weight: 48 kg

DRUGS (5)
  1. KETOROLAC [Suspect]
     Active Substance: KETOROLAC\KETOROLAC TROMETHAMINE
     Indication: PAIN
     Dosage: UNK
     Route: 042
  2. FENTANYL. [Suspect]
     Active Substance: FENTANYL
     Dosage: 50 MCG, 2 MINUTES AFTER EXTUBATION
     Route: 065
  3. FENTANYL. [Suspect]
     Active Substance: FENTANYL
     Indication: PAIN
     Dosage: FOUR 25 MCG BOLUSES IV OVER 20 MINUTES
     Route: 040
  4. BUPIVACAINE. [Concomitant]
     Active Substance: BUPIVACAINE
     Indication: LOCAL ANAESTHESIA
     Dosage: 25 ML OF THE MIXTURE WAS INJECTED ON EACH SIDE FOR THE TAP BLOCK
     Route: 065
  5. FENTANYL. [Suspect]
     Active Substance: FENTANYL
     Indication: PRODUCT USED FOR UNKNOWN INDICATION
     Dosage: 25 MCG IV
     Route: 042

REACTIONS (5)
  - Respiratory depression [Recovering/Resolving]
  - Unresponsive to stimuli [Recovering/Resolving]
  - Apnoea [Recovering/Resolving]
  - Respiratory acidosis [Recovering/Resolving]
  - Overdose [Recovering/Resolving]
